FAERS Safety Report 11798532 (Version 2)
Quarter: 2017Q1

REPORT INFORMATION
  Report Type: Spontaneous
  Country: US (occurrence: US)
  Receive Date: 20151203
  Receipt Date: 20170123
  Transmission Date: 20170428
  Serious: No
  Sender: FDA-Public Use
  Company Number: US-REGENERON PHARMACEUTICALS, INC.-2015-11756

PATIENT

DRUGS (3)
  1. EYLEA [Suspect]
     Active Substance: AFLIBERCEPT
     Indication: MACULAR DEGENERATION
     Dosage: UNK
     Route: 031
     Dates: start: 20150706, end: 20150706
  2. EYLEA [Suspect]
     Active Substance: AFLIBERCEPT
     Dosage: UNK, EVERY 3 MONTHS
  3. EYLEA [Suspect]
     Active Substance: AFLIBERCEPT
     Dosage: UNK, EVERY 3 MONTHS
     Dates: start: 20160201, end: 20160201

REACTIONS (7)
  - Acne [Unknown]
  - Malaise [Unknown]
  - Inappropriate schedule of drug administration [Unknown]
  - Eye disorder [Unknown]
  - Visual impairment [Not Recovered/Not Resolved]
  - Ocular hyperaemia [Unknown]
  - Vitreous floaters [Not Recovered/Not Resolved]

NARRATIVE: CASE EVENT DATE: 20150709
